FAERS Safety Report 8523783-8 (Version None)
Quarter: 2012Q3

REPORT INFORMATION
  Report Type: 
  Country: None (occurrence: None)
  Receive Date: 20120720
  Receipt Date: 20120713
  Transmission Date: 20120928
  Serious: Yes (Other)
  Sender: FDA-Public Use
  Company Number: US-ASTELLAS-2012US006059

PATIENT
  Sex: Male
  Weight: 49 kg

DRUGS (3)
  1. TARCEVA [Suspect]
     Dosage: 50 MG, UID/QD
     Route: 048
  2. TARCEVA [Suspect]
     Indication: PANCREATIC CARCINOMA
     Dosage: 100 MG, UID/QD
     Route: 048
     Dates: start: 20120627, end: 20120629
  3. GEMCITABINE [Suspect]
     Indication: PANCREATIC CARCINOMA
     Dosage: 1000 MG/M2, WEEKLY
     Route: 042
     Dates: start: 20120620

REACTIONS (1)
  - THROMBOCYTOPENIA [None]
